FAERS Safety Report 11158858 (Version 1)
Quarter: 2015Q2

REPORT INFORMATION
  Report Type: Spontaneous
  Country: FR (occurrence: FR)
  Receive Date: 20150603
  Receipt Date: 20150603
  Transmission Date: 20150821
  Serious: Yes (Hospitalization)
  Sender: FDA-Public Use
  Company Number: FR-SA-2015SA072508

PATIENT
  Age: 63 Year
  Sex: Female

DRUGS (3)
  1. PROTHIADEN [Concomitant]
     Active Substance: DOTHIEPIN HYDROCHLORIDE
     Dosage: STRENGHT: 75 MG
  2. FLUDARABINE PHOSPHATE. [Suspect]
     Active Substance: FLUDARABINE PHOSPHATE
     Route: 048
     Dates: start: 200908, end: 201001
  3. INFLUENZA VACCINE [Suspect]
     Active Substance: INFLUENZA VIRUS VACCINE
     Route: 065
     Dates: start: 20100105, end: 20100126

REACTIONS (1)
  - Acute disseminated encephalomyelitis [Recovering/Resolving]

NARRATIVE: CASE EVENT DATE: 20100213
